FAERS Safety Report 6087664-4 (Version None)
Quarter: 2009Q1

REPORT INFORMATION
  Report Type: 
  Country: None (occurrence: None)
  Receive Date: 20090218
  Receipt Date: 20090218
  Transmission Date: 20090719
  Serious: No
  Sender: FDA-Public Use
  Company Number: None

PATIENT
  Age: 26 Year
  Sex: Female
  Weight: 73.4827 kg

DRUGS (1)
  1. PROAIR HFA [Suspect]
     Indication: BRONCHITIS
     Dosage: 2 PUFFS INHAED BY MOUTH 4 TIMES/DAY PRN  8.5 HOURS
     Dates: start: 20090216, end: 20090216

REACTIONS (7)
  - ORAL MUCOSAL ERYTHEMA [None]
  - ORAL PAIN [None]
  - PETECHIAE [None]
  - SWOLLEN TONGUE [None]
  - TONGUE DISCOLOURATION [None]
  - TONGUE DISORDER [None]
  - TONGUE HAEMORRHAGE [None]
